FAERS Safety Report 11119150 (Version 1)
Quarter: 2015Q2

REPORT INFORMATION
  Report Type: Spontaneous
  Country: US (occurrence: US)
  Receive Date: 20150518
  Receipt Date: 20150518
  Transmission Date: 20150821
  Serious: Yes (Other)
  Sender: FDA-Public Use
  Company Number: US-CELGENEUS-USA-2015050573

PATIENT
  Sex: Male
  Weight: 115.77 kg

DRUGS (3)
  1. DEXAMETHASONE. [Suspect]
     Active Substance: DEXAMETHASONE
     Indication: PRODUCT USED FOR UNKNOWN INDICATION
     Route: 065
  2. THALOMID [Suspect]
     Active Substance: THALIDOMIDE
     Route: 048
     Dates: start: 200612, end: 200806
  3. THALOMID [Suspect]
     Active Substance: THALIDOMIDE
     Indication: PLASMA CELL MYELOMA
     Route: 048
     Dates: start: 200501

REACTIONS (10)
  - Type 2 diabetes mellitus [Unknown]
  - Asthenia [Unknown]
  - Mood swings [Unknown]
  - Visual acuity reduced [Recovered/Resolved]
  - Neuropathy peripheral [Unknown]
  - Hunger [Unknown]
  - Weight increased [Unknown]
  - Anger [Unknown]
  - Peripheral swelling [Unknown]
  - Fatigue [Unknown]
